FAERS Safety Report 9368940 (Version 1)
Quarter: 2013Q2

REPORT INFORMATION
  Report Type: Spontaneous
  Country: KR (occurrence: None)
  Receive Date: 20130621
  Receipt Date: 20130621
  Transmission Date: 20140414
  Serious: Yes (Other)
  Sender: FDA-Public Use
  Company Number: 2013JP006812

PATIENT
  Age: 61 Year
  Sex: Female

DRUGS (1)
  1. VESICARE (SOLIFENACIN) TABLET [Suspect]
     Indication: HYPERTONIC BLADDER
     Route: 048
     Dates: start: 20081014, end: 20081103

REACTIONS (2)
  - Cellulitis [None]
  - Rash [None]
